FAERS Safety Report 9188415 (Version 2)
Quarter: 2013Q2

REPORT INFORMATION
  Report Type: Spontaneous
  Country: JP (occurrence: JP)
  Receive Date: 20130325
  Receipt Date: 20130424
  Transmission Date: 20140414
  Serious: Yes (Hospitalization)
  Sender: FDA-Public Use
  Company Number: JP-SANOFI-AVENTIS-2013SA027874

PATIENT
  Age: 40 Year
  Sex: Male

DRUGS (5)
  1. ELPLAT [Suspect]
     Indication: COLON CANCER
     Route: 041
     Dates: start: 20130121, end: 20130121
  2. AVASTIN [Suspect]
     Indication: COLON CANCER
     Route: 041
     Dates: start: 20130121, end: 20130121
  3. CALCIUM LEVOFOLINATE [Concomitant]
     Indication: COLON CANCER
     Dates: start: 201110
  4. 5-FU [Concomitant]
     Indication: COLON CANCER
     Dates: start: 201110
  5. XELODA [Concomitant]

REACTIONS (3)
  - Disseminated intravascular coagulation [Recovered/Resolved]
  - Acute hepatic failure [Recovered/Resolved]
  - Renal failure acute [Recovered/Resolved]
